FAERS Safety Report 22195749 (Version 1)
Quarter: 2023Q2

REPORT INFORMATION
  Report Type: Spontaneous
  Country: ES (occurrence: ES)
  Receive Date: 20230411
  Receipt Date: 20230411
  Transmission Date: 20230722
  Serious: Yes (Hospitalization)
  Sender: FDA-Public Use
  Company Number: None

PATIENT
  Age: 82 Year
  Sex: Female
  Weight: 73 kg

DRUGS (13)
  1. OMEPRAZOLE [Suspect]
     Active Substance: OMEPRAZOLE
     Indication: Prophylaxis
     Dosage: UNK (1 COMPRIMIDO AL D?A DE 20MG)
     Route: 048
     Dates: start: 20230306, end: 20230309
  2. SPIRONOLACTONE [Suspect]
     Active Substance: SPIRONOLACTONE
     Indication: Cardiac failure
     Dosage: 25 MG, Q24H (1 COMPRIMIDO DE 25MG AL D?A)
     Route: 048
     Dates: start: 20230306, end: 20230309
  3. VISIPAQUE [Suspect]
     Active Substance: IODIXANOL
     Indication: Arterial catheterisation
     Dosage: 247 ML, TOTAL (1 DAY) (247 CC EN DOSIS ?NICA PARA CATETERISMO)
     Route: 013
     Dates: start: 20230306, end: 20230306
  4. ATORVASTATIN [Concomitant]
     Active Substance: ATORVASTATIN
     Indication: Dyslipidaemia
     Dosage: 40 MG, Q24H
     Route: 065
     Dates: start: 20230306
  5. METFORMIN HYDROCHLORIDE\SITAGLIPTIN PHOSPHATE [Concomitant]
     Active Substance: METFORMIN HYDROCHLORIDE\SITAGLIPTIN PHOSPHATE
     Indication: Type 2 diabetes mellitus
     Dosage: 1 DOSAGE FORM, Q12H
     Route: 048
     Dates: start: 20141108, end: 20230310
  6. DIGOXIN [Concomitant]
     Active Substance: DIGOXIN
     Indication: Atrial fibrillation
     Dosage: 0.25 MG, Q24H (1 COMPRIMIDO DE 0.25MG CADA 24H)
     Route: 048
     Dates: start: 20230306, end: 20230309
  7. METFORMIN HYDROCHLORIDE [Concomitant]
     Active Substance: METFORMIN HYDROCHLORIDE
     Indication: Type 2 diabetes mellitus
     Dosage: 850 MG, Q24H
     Route: 048
     Dates: start: 20230307, end: 20230310
  8. METOPROLOL TARTRATE [Concomitant]
     Active Substance: METOPROLOL TARTRATE
     Indication: Atrial fibrillation
     Dosage: 100 MG, Q12H
     Route: 065
     Dates: start: 20230307, end: 20230310
  9. ASPIRIN [Concomitant]
     Active Substance: ASPIRIN
     Indication: Product used for unknown indication
     Dosage: UNK (100 MG 30 COMPRIMIDOS GASTRORRESISTENTES )
     Route: 048
     Dates: start: 20220615
  10. PLAVIX [Concomitant]
     Active Substance: CLOPIDOGREL BISULFATE
     Indication: Coronary artery disease
     Dosage: 75 MG, Q24H
     Route: 065
     Dates: start: 20230306
  11. ELIQUIS [Concomitant]
     Active Substance: APIXABAN
     Indication: Atrial fibrillation
     Dosage: 5 MG, Q12H
     Route: 065
     Dates: start: 20230306, end: 20230310
  12. HYDROCHLOROTHIAZIDE\TELMISARTAN [Concomitant]
     Active Substance: HYDROCHLOROTHIAZIDE\TELMISARTAN
     Indication: Hypertension
     Dosage: 1 DOSAGE FORM, Q24H
     Route: 065
     Dates: start: 20190913, end: 20230310
  13. FUROSEMIDE [Concomitant]
     Active Substance: FUROSEMIDE
     Indication: Cardiac failure
     Dosage: UNK
     Route: 042
     Dates: start: 20230228, end: 20230306

REACTIONS (1)
  - Acute kidney injury [Recovered/Resolved]

NARRATIVE: CASE EVENT DATE: 20230310
